FAERS Safety Report 24373320 (Version 1)
Quarter: 2024Q3

REPORT INFORMATION
  Report Type: Other
  Country: FR (occurrence: FR)
  Receive Date: 20240927
  Receipt Date: 20240927
  Transmission Date: 20241017
  Serious: Yes (Hospitalization)
  Sender: INCYTE
  Company Number: None

PATIENT

DRUGS (2)
  1. RUXOLITINIB [Suspect]
     Active Substance: RUXOLITINIB
     Indication: Myelofibrosis
     Dosage: 20 MG/J
     Route: 048
     Dates: start: 20240209, end: 20240725
  2. RITUXIMAB [Suspect]
     Active Substance: RITUXIMAB
     Indication: Thrombocytopenia
     Dosage: UNK, (MAMMIFERE/HAMSTER/CELLULES CHO), (1 CURE)
     Route: 042
     Dates: start: 20240208, end: 20240208

REACTIONS (3)
  - Acute sinusitis [Recovered/Resolved]
  - Post herpetic neuralgia [Recovered/Resolved with Sequelae]
  - Rash vesicular [Recovered/Resolved with Sequelae]

NARRATIVE: CASE EVENT DATE: 20240706
